FAERS Safety Report 4648361-2 (Version None)
Quarter: 2005Q2

REPORT INFORMATION
  Report Type: 
  Country: None (occurrence: None)
  Receive Date: 20050427
  Receipt Date: 20050414
  Transmission Date: 20051028
  Serious: Yes (Death)
  Sender: FDA-Public Use
  Company Number: MK200504-0157-1

PATIENT
  Age: 34 Year
  Sex: Male

DRUGS (1)
  1. CONRAY [Suspect]
     Indication: UROGRAPHY
     Dosage: 50 ML, ONE TIME, IV
     Route: 042
     Dates: start: 20050413, end: 20050413

REACTIONS (2)
  - COMA [None]
  - VOMITING [None]
